FAERS Safety Report 5877392-X (Version None)
Quarter: 2008Q3

REPORT INFORMATION
  Report Type: 
  Country: None (occurrence: None)
  Receive Date: 20080909
  Receipt Date: 20080903
  Transmission Date: 20090109
  Serious: Yes (Other)
  Sender: FDA-Public Use
  Company Number: A0745901A

PATIENT
  Age: 14 Year
  Sex: Female

DRUGS (1)
  1. SODIUM FLUORIDE TOOTHPASTE (SODIUM FLUORIDE) [Suspect]
     Indication: DENTAL CLEANING
     Dosage: DENTAL
     Route: 004

REACTIONS (1)
  - ANAPHYLACTIC REACTION [None]
